FAERS Safety Report 7477850-0 (Version None)
Quarter: 2011Q2

REPORT INFORMATION
  Report Type: 
  Country: None (occurrence: None)
  Receive Date: 20110513
  Receipt Date: 20110420
  Transmission Date: 20111010
  Serious: Yes (Hospitalization)
  Sender: FDA-Public Use
  Company Number: US-BAYER-201012723NA

PATIENT
  Age: 22 Year
  Sex: Female
  Weight: 112.93 kg

DRUGS (6)
  1. ACETAMINOPHEN [Concomitant]
  2. ADVIL LIQUI-GELS [Concomitant]
  3. YAZ [Suspect]
     Indication: PRODUCT USED FOR UNKNOWN INDICATION
     Dosage: AS USED DOSE: UNK
     Route: 048
     Dates: start: 20070101, end: 20091001
  4. ANTICOAGULANTS [Concomitant]
  5. YASMIN [Suspect]
     Indication: PRODUCT USED FOR UNKNOWN INDICATION
     Dosage: AS USED DOSE: UNK
     Route: 048
     Dates: start: 20091001, end: 20091101
  6. ANTIBIOTICS [Concomitant]

REACTIONS (3)
  - CHEST PAIN [None]
  - PULMONARY INFARCTION [None]
  - PULMONARY EMBOLISM [None]
